FAERS Safety Report 4899953-7 (Version None)
Quarter: 2006Q1

REPORT INFORMATION
  Report Type: 
  Country: None (occurrence: None)
  Receive Date: 20060201
  Receipt Date: 20060112
  Transmission Date: 20060701
  Serious: Yes (Hospitalization)
  Sender: FDA-Public Use
  Company Number: US200601002146

PATIENT
  Age: 80 Year
  Sex: Female

DRUGS (2)
  1. EVISTA [Suspect]
     Dosage: ORAL
     Route: 048
  2. MS CONTIN [Concomitant]

REACTIONS (3)
  - ATRIAL FIBRILLATION [None]
  - HYPERTENSION [None]
  - MEMORY IMPAIRMENT [None]
